FAERS Safety Report 9861572 (Version 2)
Quarter: 2014Q1

REPORT INFORMATION
  Report Type: Spontaneous
  Country: BR (occurrence: BR)
  Receive Date: 20140203
  Receipt Date: 20140203
  Transmission Date: 20141002
  Serious: Yes (Hospitalization)
  Sender: FDA-Public Use
  Company Number: BR-BIOGENIDEC-2013BI111630

PATIENT
  Age: 21 Year
  Sex: Female

DRUGS (7)
  1. AVONEX [Suspect]
     Indication: MULTIPLE SCLEROSIS
     Route: 030
     Dates: start: 20131031
  2. TRILEPTAL [Concomitant]
     Indication: EPILEPSY
  3. INSULIN [Concomitant]
     Indication: DIABETES MELLITUS
  4. INSULIN [Concomitant]
     Indication: DIABETES MELLITUS
  5. SELENE [Concomitant]
  6. RIVOTRIL [Concomitant]
  7. LISPRO [Concomitant]
     Indication: DIABETES MELLITUS

REACTIONS (5)
  - Laryngeal oedema [Not Recovered/Not Resolved]
  - Dermatitis allergic [Not Recovered/Not Resolved]
  - Erythema [Not Recovered/Not Resolved]
  - Nasal oedema [Not Recovered/Not Resolved]
  - Lip swelling [Not Recovered/Not Resolved]
